FAERS Safety Report 24744547 (Version 1)
Quarter: 2024Q4

REPORT INFORMATION
  Report Type: Other
  Country: CZ (occurrence: CZ)
  Receive Date: 20241217
  Receipt Date: 20241217
  Transmission Date: 20250115
  Serious: Yes (Other)
  Sender: BIOCON
  Company Number: None

PATIENT

DRUGS (12)
  1. TRASTUZUMAB [Suspect]
     Active Substance: TRASTUZUMAB
     Indication: Breast cancer
     Dosage: 600 MILLIGRAM, EVERY 21 DAYS
     Route: 065
     Dates: start: 2012
  2. PERTUZUMAB [Suspect]
     Active Substance: PERTUZUMAB
     Indication: Invasive ductal breast carcinoma
     Dosage: UNK
     Route: 065
  3. DOCETAXEL [Suspect]
     Active Substance: DOCETAXEL
     Indication: Invasive ductal breast carcinoma
     Dosage: UNK
     Route: 065
  4. CAPECITABINE [Suspect]
     Active Substance: CAPECITABINE
     Indication: Disease progression
     Dosage: UNK
     Route: 065
  5. CYCLOPHOSPHAMIDE [Suspect]
     Active Substance: CYCLOPHOSPHAMIDE
     Indication: Breast cancer
     Dosage: 600 MILLIGRAM/SQ. METER
     Route: 065
     Dates: start: 2012
  6. DOXORUBICIN HYDROCHLORIDE [Suspect]
     Active Substance: DOXORUBICIN HYDROCHLORIDE
     Indication: Breast cancer
     Dosage: 60 MILLIGRAM/SQ. METER
     Route: 065
     Dates: start: 2012
  7. GOSERELIN [Suspect]
     Active Substance: GOSERELIN
     Indication: Breast cancer
     Dosage: UNK
     Route: 065
     Dates: start: 2012
  8. LAPATINIB [Suspect]
     Active Substance: LAPATINIB
     Indication: Disease progression
     Dosage: UNK
     Route: 065
  9. LETROZOLE [Suspect]
     Active Substance: LETROZOLE
     Indication: Breast cancer
     Dosage: UNK
     Route: 065
     Dates: start: 2012
  10. PACLITAXEL [Suspect]
     Active Substance: PACLITAXEL
     Indication: Breast cancer
     Dosage: 12X90 MILLIGRAM/SQ. METER
     Route: 065
     Dates: start: 2012
  11. TAMOXIFEN [Suspect]
     Active Substance: TAMOXIFEN
     Indication: Breast cancer
     Dosage: PLANNED FOR ANOTHER FIVE YEARS
     Route: 065
  12. FAM-TRASTUZUMAB DERUXTECAN-NXKI [Concomitant]
     Active Substance: FAM-TRASTUZUMAB DERUXTECAN-NXKI
     Indication: Product used for unknown indication
     Dosage: 5.4 MILLIGRAM/KILOGRAM
     Route: 065

REACTIONS (4)
  - Disease progression [Unknown]
  - Pain [Unknown]
  - Dyspnoea [Unknown]
  - Therapeutic product effect incomplete [Unknown]
